FAERS Safety Report 13946997 (Version 2)
Quarter: 2017Q3

REPORT INFORMATION
  Report Type: Report from Study
  Country: DE (occurrence: DE)
  Receive Date: 20170907
  Receipt Date: 20170920
  Transmission Date: 20171128
  Serious: Yes (Hospitalization)
  Sender: FDA-Public Use
  Company Number: DE-B.I. PHARMACEUTICALS,INC./RIDGEFIELD-2015-BI-20641DE

PATIENT
  Age: 60 Year
  Sex: Female
  Weight: 93 kg

DRUGS (9)
  1. DOCETAXEL. [Suspect]
     Active Substance: DOCETAXEL
     Dosage: 100MG/M2 BSA
     Route: 042
  2. DECORTIN [Concomitant]
     Active Substance: PREDNISONE
     Indication: PULMONARY FIBROSIS
     Route: 065
  3. VARGATEF [Suspect]
     Active Substance: NINTEDANIB
     Indication: LUNG ADENOCARCINOMA
     Route: 048
     Dates: start: 20150319, end: 20150416
  4. VARGATEF [Suspect]
     Active Substance: NINTEDANIB
     Route: 048
     Dates: end: 20150630
  5. TROMCARDIN [Concomitant]
     Active Substance: MAGNESIUM ASPARTATE\POTASSIUM ASPARTATE
     Indication: ATRIAL FIBRILLATION
     Route: 065
  6. ACC 600MG [Concomitant]
     Indication: ATRIAL FIBRILLATION
     Route: 065
  7. DOCETAXEL. [Suspect]
     Active Substance: DOCETAXEL
     Indication: LUNG ADENOCARCINOMA
     Dosage: UNIT DOSE: 100MG/M2 BSA; DAILY DOSE: 192MG
     Route: 042
     Dates: start: 20150318, end: 20150408
  8. BISOPROLOL [Concomitant]
     Active Substance: BISOPROLOL
     Indication: HYPERTENSION
     Route: 065
  9. NOVAMIN (PROCHLORPERAZINE) [Concomitant]
     Active Substance: PROCHLORPERAZINE
     Indication: PROPHYLAXIS
     Route: 048
     Dates: start: 20140708

REACTIONS (5)
  - Diarrhoea [Recovered/Resolved]
  - Abdominal pain [Recovered/Resolved]
  - Large intestine perforation [Recovered/Resolved]
  - Diverticulitis [Recovered/Resolved with Sequelae]
  - Stomatitis [Recovered/Resolved]

NARRATIVE: CASE EVENT DATE: 20150320
